FAERS Safety Report 22366144 (Version 1)
Quarter: 2023Q2

REPORT INFORMATION
  Report Type: Spontaneous
  Country: IT (occurrence: IT)
  Receive Date: 20230525
  Receipt Date: 20230525
  Transmission Date: 20230722
  Serious: Yes (Other)
  Sender: FDA-Public Use
  Company Number: IT-ELI_LILLY_AND_COMPANY-IT202305013353

PATIENT
  Age: 62 Year
  Sex: Male

DRUGS (1)
  1. SELPERCATINIB [Suspect]
     Active Substance: SELPERCATINIB
     Indication: Thyroid cancer
     Dosage: 160 MG, BID
     Route: 065
     Dates: start: 202211

REACTIONS (4)
  - Brain oedema [Unknown]
  - Malignant neoplasm progression [Unknown]
  - Weight increased [Unknown]
  - Therapy partial responder [Unknown]

NARRATIVE: CASE EVENT DATE: 20221101
